FAERS Safety Report 14625984 (Version 1)
Quarter: 2018Q1

REPORT INFORMATION
  Report Type: Spontaneous
  Country: CN (occurrence: CN)
  Receive Date: 20180312
  Receipt Date: 20180312
  Transmission Date: 20180509
  Serious: Yes (Other)
  Sender: FDA-Public Use
  Company Number: CN-ABBVIE-18P-035-2284880-00

PATIENT
  Age: 38 Year
  Sex: Female

DRUGS (2)
  1. DEPAKINE CHRONO [Suspect]
     Active Substance: VALPROATE SODIUM
     Indication: DRUG THERAPY
     Dosage: 0.5 GRAM(S);EVERY 12 HOURS
     Route: 048
     Dates: start: 20180103, end: 20180116
  2. LAMOTRIGINE. [Suspect]
     Active Substance: LAMOTRIGINE
     Indication: DRUG THERAPY
     Dosage: 0.75 MILLIGRAM(S);EVERY 12 HOURS
     Route: 048
     Dates: start: 20171222, end: 20180116

REACTIONS (1)
  - Drug eruption [Not Recovered/Not Resolved]

NARRATIVE: CASE EVENT DATE: 20180112
